FAERS Safety Report 7000103-1 (Version None)
Quarter: 2010Q3

REPORT INFORMATION
  Report Type: 
  Country: None (occurrence: None)
  Receive Date: 20100920
  Receipt Date: 20100309
  Transmission Date: 20110219
  Serious: No
  Sender: FDA-Public Use
  Company Number: US-ASTRAZENECA-2009SE22182

PATIENT
  Age: 552 Month
  Sex: Female
  Weight: 82.1 kg

DRUGS (2)
  1. SEROQUEL [Suspect]
     Indication: DEPRESSION
     Route: 048
     Dates: start: 20010101, end: 20051101
  2. GEODON [Concomitant]
     Dates: start: 20070101

REACTIONS (3)
  - ADVERSE DRUG REACTION [None]
  - OBESITY [None]
  - TYPE 2 DIABETES MELLITUS [None]
